FAERS Safety Report 19599018 (Version 1)
Quarter: 2021Q3

REPORT INFORMATION
  Report Type: Spontaneous
  Country: US (occurrence: US)
  Receive Date: 20210722
  Receipt Date: 20210722
  Transmission Date: 20211014
  Serious: Yes (Hospitalization)
  Sender: FDA-Public Use
  Company Number: None

PATIENT
  Age: 50 Year
  Sex: Female

DRUGS (1)
  1. AMOXICILLIN/CLAVULANATE (AMOXICILLIN250MG/CLAVULANATE K 125MG TAB) [Suspect]
     Active Substance: AMOXICILLIN\CLAVULANATE POTASSIUM
     Route: 048
     Dates: start: 20210628, end: 20210708

REACTIONS (2)
  - Rash [None]
  - Sialoadenitis [None]

NARRATIVE: CASE EVENT DATE: 20210708
